FAERS Safety Report 9270133 (Version 2)
Quarter: 2013Q2

REPORT INFORMATION
  Report Type: Spontaneous
  Country: NZ (occurrence: NZ)
  Receive Date: 20130503
  Receipt Date: 20130520
  Transmission Date: 20140414
  Serious: Yes (Disabling, Other)
  Sender: FDA-Public Use
  Company Number: NZ-PFIZER INC-2013098105

PATIENT
  Age: 63 Year
  Sex: Female
  Weight: 80 kg

DRUGS (2)
  1. VENLAFAXINE HCL [Suspect]
     Indication: DEPRESSION
     Dosage: UNK
     Route: 048
  2. VENLAFAXINE HCL [Suspect]
     Dosage: 150 MG, DAILY
     Route: 048
     Dates: start: 201210, end: 201303

REACTIONS (5)
  - Productive cough [Recovering/Resolving]
  - Increased upper airway secretion [Recovering/Resolving]
  - Respiratory disorder [Unknown]
  - Hypersensitivity [Unknown]
  - Pneumonitis [Unknown]
